FAERS Safety Report 21228084 (Version 1)
Quarter: 2022Q3

REPORT INFORMATION
  Report Type: Spontaneous
  Country: US (occurrence: None)
  Receive Date: 20220817
  Receipt Date: 20220817
  Transmission Date: 20221026
  Serious: Yes (Hospitalization)
  Sender: FDA-Public Use
  Company Number: None

PATIENT
  Age: 50 Year
  Sex: Female

DRUGS (1)
  1. TACROLIMUS [Suspect]
     Active Substance: TACROLIMUS
     Dosage: FREQUENCY : DAILY;?
     Route: 048

REACTIONS (5)
  - Salmonellosis [None]
  - Therapy interrupted [None]
  - Dehydration [None]
  - Blood creatinine increased [None]
  - Diarrhoea [None]

NARRATIVE: CASE EVENT DATE: 20220716
